FAERS Safety Report 6397309-1 (Version None)
Quarter: 2009Q4

REPORT INFORMATION
  Report Type: 
  Country: None (occurrence: None)
  Receive Date: 20091012
  Receipt Date: 20091007
  Transmission Date: 20100525
  Serious: Yes (Other)
  Sender: FDA-Public Use
  Company Number: B0597150A

PATIENT
  Sex: Female

DRUGS (1)
  1. NICABATE CQ CLEAR 21MG [Suspect]
     Indication: DRUG WITHDRAWAL MAINTENANCE THERAPY
     Dosage: 2PAT PER DAY
     Route: 062
     Dates: start: 20090901, end: 20090901

REACTIONS (2)
  - AGGRESSION [None]
  - DRUG EXPOSURE DURING PREGNANCY [None]
